FAERS Safety Report 8017126-6 (Version None)
Quarter: 2012Q1

REPORT INFORMATION
  Report Type: 
  Country: None (occurrence: None)
  Receive Date: 20120102
  Receipt Date: 20111221
  Transmission Date: 20120608
  Serious: Yes (Other)
  Sender: FDA-Public Use
  Company Number: US-ROCHE-792344

PATIENT
  Sex: Female
  Weight: 50.848 kg

DRUGS (3)
  1. ACCUTANE [Suspect]
     Indication: ACNE
     Route: 065
  2. ACCUTANE [Suspect]
     Route: 065
     Dates: start: 19971007, end: 19980810
  3. ACCUTANE [Suspect]
     Route: 065
     Dates: start: 19901024, end: 19910207

REACTIONS (6)
  - COLITIS ULCERATIVE [None]
  - CROHN'S DISEASE [None]
  - ANAL FISSURE [None]
  - DEPRESSION [None]
  - SUICIDAL IDEATION [None]
  - INFLAMMATORY BOWEL DISEASE [None]
